FAERS Safety Report 10662727 (Version 1)
Quarter: 2014Q4

REPORT INFORMATION
  Report Type: Spontaneous
  Country: US (occurrence: US)
  Receive Date: 20141218
  Receipt Date: 20141218
  Transmission Date: 20150529
  Serious: No
  Sender: FDA-Public Use
  Company Number: US-SHIRE-US201408430

PATIENT
  Age: 50 Year
  Sex: Female

DRUGS (1)
  1. PENTASA [Suspect]
     Active Substance: MESALAMINE
     Indication: CROHN^S DISEASE
     Dosage: UNK UNK, 2X/DAY:BID
     Route: 048

REACTIONS (2)
  - Product use issue [Recovered/Resolved]
  - No adverse event [Recovered/Resolved]
